FAERS Safety Report 5703808-5 (Version None)
Quarter: 2008Q2

REPORT INFORMATION
  Report Type: 
  Country: None (occurrence: None)
  Receive Date: 20080414
  Receipt Date: 20080331
  Transmission Date: 20081010
  Serious: Yes (Other)
  Sender: FDA-Public Use
  Company Number: GB-BAYER-200810852BNE

PATIENT
  Age: 35 Year
  Sex: Male

DRUGS (1)
  1. LEVITRA [Suspect]
     Indication: ERECTILE DYSFUNCTION

REACTIONS (5)
  - ERECTILE DYSFUNCTION [None]
  - ERECTION INCREASED [None]
  - MYALGIA [None]
  - TESTICULAR PAIN [None]
  - VISUAL DISTURBANCE [None]
